FAERS Safety Report 8623261-1 (Version None)
Quarter: 2012Q3

REPORT INFORMATION
  Report Type: 
  Country: None (occurrence: None)
  Receive Date: 20120815
  Receipt Date: 20120809
  Transmission Date: 20120928
  Serious: Yes (Other)
  Sender: FDA-Public Use
  Company Number: 2012032018

PATIENT
  Sex: Female
  Weight: 67.1324 kg

DRUGS (15)
  1. DIASTAT [Concomitant]
  2. SINGULAIR [Concomitant]
  3. SYNTHROID [Concomitant]
  4. FLUTICASONE PROPIONATE [Concomitant]
  5. METOCLOPRAMIDE [Concomitant]
  6. BACLOFEN [Concomitant]
  7. DROPERIDOL [Concomitant]
  8. CORTISONE ACETATE [Concomitant]
  9. HIZENTRA [Suspect]
     Dosage: SEE IMAGE SUBCUTANEOUS
     Route: 058
  10. PROMETHAZINE [Concomitant]
  11. EPIPEN [Concomitant]
  12. ROPINIROLE [Concomitant]
  13. LMX (LIDOCAINE) [Concomitant]
  14. DIAZEPAM [Concomitant]
  15. XOPENEX [Concomitant]

REACTIONS (7)
  - INJECTION SITE PAIN [None]
  - EAR PAIN [None]
  - EAR INFECTION [None]
  - INJECTION SITE NODULE [None]
  - INJECTION SITE ERYTHEMA [None]
  - DEAFNESS [None]
  - OFF LABEL USE [None]
